FAERS Safety Report 8848889 (Version 1)
Quarter: 2012Q4

REPORT INFORMATION
  Report Type: Spontaneous
  Country: KR (occurrence: None)
  Receive Date: 20121016
  Receipt Date: 20121016
  Transmission Date: 20130627
  Serious: Yes (Other)
  Sender: FDA-Public Use
  Company Number: FRESENIUS KABI USA

PATIENT
  Age: 48 Year
  Sex: Female

DRUGS (3)
  1. FLUDARABINE [Suspect]
  2. ALEMTUZUMAB [Suspect]
     Dosage: 30-180 mg
  3. BUSULFAN [Suspect]

REACTIONS (1)
  - Pneumocystis jiroveci pneumonia [None]
